FAERS Safety Report 7154845-8 (Version None)
Quarter: 2010Q4

REPORT INFORMATION
  Report Type: 
  Country: None (occurrence: None)
  Receive Date: 20101214
  Receipt Date: 20091110
  Transmission Date: 20110411
  Serious: No
  Sender: FDA-Public Use
  Company Number: US-AMGEN-KDL373866

PATIENT

DRUGS (2)
  1. ENBREL [Suspect]
     Indication: RHEUMATOID ARTHRITIS
     Dosage: 50 MG, QWK
     Route: 058
     Dates: start: 20070507
  2. DOXYCYCLINE [Concomitant]

REACTIONS (5)
  - ARTHRALGIA [None]
  - CHILLS [None]
  - DRUG HYPERSENSITIVITY [None]
  - MUSCULOSKELETAL PAIN [None]
  - RASH [None]
